FAERS Safety Report 26218411 (Version 1)
Quarter: 2025Q4

REPORT INFORMATION
  Report Type: Spontaneous
  Country: CN (occurrence: CN)
  Receive Date: 20251231
  Receipt Date: 20251231
  Transmission Date: 20260118
  Serious: Yes (Other)
  Sender: PFIZER
  Company Number: CN-PFIZER INC-PV202500149711

PATIENT
  Age: 53 Year
  Sex: Male
  Weight: 61 kg

DRUGS (4)
  1. AXITINIB [Suspect]
     Active Substance: AXITINIB
     Indication: Renal cancer
     Dosage: 8 MG, 2X/DAY
     Route: 048
     Dates: start: 20231028, end: 20251211
  2. AXITINIB [Suspect]
     Active Substance: AXITINIB
     Dosage: 6 MG, 2X/DAY
     Route: 048
     Dates: start: 20251212, end: 20251214
  3. AXITINIB [Suspect]
     Active Substance: AXITINIB
     Dosage: 6 MG, 1X/DAY
     Route: 048
     Dates: start: 20251219
  4. AXITINIB [Suspect]
     Active Substance: AXITINIB
     Indication: Renal cancer
     Dosage: 5 MG, 2X/DAY
     Route: 048
     Dates: start: 20251215, end: 20251218

REACTIONS (2)
  - Tinea pedis [Recovering/Resolving]
  - Skin infection [Recovering/Resolving]

NARRATIVE: CASE EVENT DATE: 20251201
